FAERS Safety Report 10373360 (Version 1)
Quarter: 2014Q3

REPORT INFORMATION
  Report Type: Spontaneous
  Country: US (occurrence: US)
  Receive Date: 20140808
  Receipt Date: 20140808
  Transmission Date: 20150326
  Serious: Yes (Other)
  Sender: FDA-Public Use
  Company Number: US-PFIZER INC-2014219256

PATIENT
  Sex: Female

DRUGS (2)
  1. NICOTINE GUM [Suspect]
     Active Substance: NICOTINE
     Dosage: UNK
  2. CHANTIX [Suspect]
     Active Substance: VARENICLINE TARTRATE
     Dosage: UNK

REACTIONS (9)
  - Drug dependence [Unknown]
  - Thinking abnormal [Unknown]
  - Sluggishness [Unknown]
  - Nausea [Unknown]
  - Fatigue [Unknown]
  - Depressed mood [Unknown]
  - Abnormal dreams [Unknown]
  - Headache [Unknown]
  - Feeling abnormal [Unknown]
